FAERS Safety Report 15311127 (Version 4)
Quarter: 2018Q4

REPORT INFORMATION
  Report Type: Spontaneous
  Country: US (occurrence: US)
  Receive Date: 20180823
  Receipt Date: 20181008
  Transmission Date: 20190204
  Serious: Yes (Other)
  Sender: FDA-Public Use
  Company Number: US-PFIZER INC-2018340320

PATIENT
  Age: 50 Year
  Sex: Female
  Weight: 129.2 kg

DRUGS (3)
  1. MORPHINE [Concomitant]
     Active Substance: MORPHINE
     Dosage: UNK
  2. LYRICA [Suspect]
     Active Substance: PREGABALIN
     Dosage: 100 MG, UNK
  3. LYRICA [Suspect]
     Active Substance: PREGABALIN
     Indication: DIABETIC NEUROPATHY
     Dosage: 300 MG, DAILY (100 MG CAPSULES-3 CAPSULES DAILY)
     Route: 048
     Dates: start: 2017

REACTIONS (7)
  - Hepatic mass [Unknown]
  - Pancreatic mass [Unknown]
  - Aortic disorder [Unknown]
  - Neoplasm malignant [Unknown]
  - Cardiac disorder [Unknown]
  - Memory impairment [Unknown]
  - Intentional product use issue [Unknown]
